FAERS Safety Report 4498117-9 (Version None)
Quarter: 2004Q4

REPORT INFORMATION
  Report Type: 
  Country: None (occurrence: None)
  Receive Date: 20041110
  Receipt Date: 20040622
  Transmission Date: 20050328
  Serious: Yes (Hospitalization)
  Sender: FDA-Public Use
  Company Number: JP-MERCK-0406USA02269

PATIENT
  Age: 56 Year
  Sex: Male

DRUGS (5)
  1. PEPCID RPD [Suspect]
     Route: 048
     Dates: end: 20040615
  2. PERSANTIN INJ [Suspect]
     Route: 048
     Dates: end: 20040617
  3. RYTHMODAN [Suspect]
     Route: 048
     Dates: end: 20040615
  4. BLOPRESS [Suspect]
     Route: 048
     Dates: end: 20040615
  5. WARFARIN [Suspect]
     Route: 048
     Dates: end: 20040615

REACTIONS (1)
  - HEPATITIS [None]
